FAERS Safety Report 18260736 (Version 5)
Quarter: 2023Q4

REPORT INFORMATION
  Report Type: Spontaneous
  Country: US (occurrence: US)
  Receive Date: 20200914
  Receipt Date: 20231228
  Transmission Date: 20240110
  Serious: Yes (Hospitalization)
  Sender: FDA-Public Use
  Company Number: US-SA-2020SA247501

PATIENT
  Age: 46 Year
  Sex: Female
  Weight: 133 kg

DRUGS (18)
  1. DUPIXENT [Suspect]
     Active Substance: DUPILUMAB
     Indication: Asthma
     Dosage: 300 MG, QOW
     Route: 058
     Dates: start: 202008
  2. SPIRIVA RESPIMAT [Concomitant]
     Active Substance: TIOTROPIUM BROMIDE
  3. COUMADIN [Concomitant]
     Active Substance: WARFARIN SODIUM
  4. BREO ELLIPTA [Concomitant]
     Active Substance: FLUTICASONE FUROATE\VILANTEROL TRIFENATATE
     Dosage: UNK UNK, QD 1 PUFF SAME TIME
     Route: 055
  5. PROVENTIL HFA [SALBUTAMOL] [Concomitant]
  6. LIPITOR [Concomitant]
     Active Substance: ATORVASTATIN CALCIUM
  7. CELEBREX [Concomitant]
     Active Substance: CELECOXIB
  8. KLONOPIN [Concomitant]
     Active Substance: CLONAZEPAM
  9. RESTASIS [Concomitant]
     Active Substance: CYCLOSPORINE
  10. DOXYLAMINE SUCCINATE [Concomitant]
     Active Substance: DOXYLAMINE SUCCINATE
  11. EPIPEN [Concomitant]
     Active Substance: EPINEPHRINE
  12. NEURONIN [GABAPENTIN] [Concomitant]
  13. SYNTHROID [Concomitant]
     Active Substance: LEVOTHYROXINE SODIUM
  14. MELATONIN [Concomitant]
     Active Substance: MELATONIN
  15. NYSTATIN [Concomitant]
     Active Substance: NYSTATIN
  16. PREDNISONE [Concomitant]
     Active Substance: PREDNISONE
  17. EFFEXOR XR [Concomitant]
     Active Substance: VENLAFAXINE HYDROCHLORIDE
  18. PROAIR HFA [Concomitant]
     Active Substance: ALBUTEROL SULFATE
     Dosage: INHALE 2 PUFF(S) BY MOUTH Q 4 TO 6 HR
     Route: 048

REACTIONS (1)
  - Foot fracture [Unknown]

NARRATIVE: CASE EVENT DATE: 20200101
